FAERS Safety Report 11642690 (Version 4)
Quarter: 2016Q2

REPORT INFORMATION
  Report Type: Report from Study
  Country: US (occurrence: US)
  Receive Date: 20151020
  Receipt Date: 20160524
  Transmission Date: 20160815
  Serious: Yes (Other)
  Sender: FDA-Public Use
  Company Number: US-BEH-2015054667

PATIENT
  Age: 72 Year
  Sex: Male
  Weight: 71.5 kg

DRUGS (17)
  1. HIZENTRA [Suspect]
     Active Substance: HUMAN IMMUNOGLOBULIN G
     Route: 058
     Dates: start: 20130911, end: 20140222
  2. PREDNISONE. [Concomitant]
     Active Substance: PREDNISONE
     Route: 048
     Dates: start: 20140131
  3. TIMOPTIC-XE [Concomitant]
     Active Substance: TIMOLOL MALEATE
     Indication: GLAUCOMA
     Dosage: 1 DROP BOTH EYES DAILY
     Route: 047
     Dates: start: 20130629
  4. FISH OIL [Concomitant]
     Active Substance: FISH OIL
     Indication: SUPPLEMENTATION THERAPY
     Route: 048
     Dates: start: 20130113
  5. HIZENTRA [Suspect]
     Active Substance: HUMAN IMMUNOGLOBULIN G
     Indication: MYASTHENIA GRAVIS
     Dates: start: 20130911, end: 20140222
  6. PREDNISONE. [Concomitant]
     Active Substance: PREDNISONE
     Indication: MYASTHENIA GRAVIS
     Route: 048
     Dates: start: 20131204, end: 20141130
  7. PREDNISONE. [Concomitant]
     Active Substance: PREDNISONE
     Route: 048
     Dates: start: 20130615, end: 20131203
  8. MESTINON [Concomitant]
     Active Substance: PYRIDOSTIGMINE BROMIDE
     Indication: MYASTHENIA GRAVIS
     Route: 048
     Dates: start: 20121213
  9. CALCIUM D3 [Concomitant]
     Active Substance: CALCIUM\CHOLECALCIFEROL
     Indication: SUPPLEMENTATION THERAPY
     Route: 048
     Dates: start: 20130226
  10. SIMVASTATIN. [Concomitant]
     Active Substance: SIMVASTATIN
     Indication: HYPERCHOLESTEROLAEMIA
     Dosage: DEC-2007
     Route: 048
     Dates: end: 20131126
  11. SIMVASTATIN. [Concomitant]
     Active Substance: SIMVASTATIN
     Route: 048
     Dates: start: 20131127, end: 20131220
  12. VITAMIN D3 [Concomitant]
     Active Substance: CHOLECALCIFEROL
     Indication: SUPPLEMENTATION THERAPY
     Route: 048
     Dates: start: 20130107
  13. METAMUCIL [Concomitant]
     Active Substance: PLANTAGO SEED
     Indication: GENERAL PHYSICAL HEALTH DETERIORATION
     Dosage: 1 TABLESPOON DAILY
     Route: 048
  14. HIZENTRA [Suspect]
     Active Substance: HUMAN IMMUNOGLOBULIN G
     Dosage: 10 ML VIAL
     Dates: start: 20130911, end: 20140222
  15. TRAVATAN [Concomitant]
     Active Substance: TRAVOPROST
     Indication: GLAUCOMA
     Dosage: 1 DROP BOTH EYES DAILY
     Route: 047
     Dates: start: 20130628
  16. REFRESH OPTIVE [Concomitant]
     Active Substance: CARBOXYMETHYLCELLULOSE SODIUM\GLYCERIN
     Indication: DRY EYE
     Dosage: 1 DROP BOTH EYES DAILY
     Route: 047
     Dates: start: 20130629
  17. SAW PALMETTO [Concomitant]
     Active Substance: SAW PALMETTO
     Indication: SUPPLEMENTATION THERAPY
     Route: 048
     Dates: start: 20121221

REACTIONS (5)
  - Rash [Recovered/Resolved]
  - Cataract [Recovered/Resolved]
  - Cataract operation [Recovered/Resolved]
  - Myocardial ischaemia [Not Recovered/Not Resolved]
  - Cataract operation [Recovered/Resolved]

NARRATIVE: CASE EVENT DATE: 20130924
